FAERS Safety Report 13663424 (Version 1)
Quarter: 2017Q2

REPORT INFORMATION
  Report Type: Spontaneous
  Country: US (occurrence: US)
  Receive Date: 20170617
  Receipt Date: 20170617
  Transmission Date: 20170830
  Serious: Yes (Disabling)
  Sender: FDA-Public Use
  Company Number: None

PATIENT
  Age: 59 Year
  Sex: Female
  Weight: 126 kg

DRUGS (5)
  1. OXYCODONE 15MG ZYGENERICS [Suspect]
     Active Substance: OXYCODONE
     Indication: OSTEOARTHRITIS
     Dosage: ?          QUANTITY:168 TABLET(S);?
     Route: 048
     Dates: start: 20170615, end: 20170617
  2. OXYCODONE 15MG ZYGENERICS [Suspect]
     Active Substance: OXYCODONE
     Indication: SPINAL COLUMN STENOSIS
     Dosage: ?          QUANTITY:168 TABLET(S);?
     Route: 048
     Dates: start: 20170615, end: 20170617
  3. OXYCODONE 15MG ZYGENERICS [Suspect]
     Active Substance: OXYCODONE
     Indication: RHEUMATOID ARTHRITIS
     Dosage: ?          QUANTITY:168 TABLET(S);?
     Route: 048
     Dates: start: 20170615, end: 20170617
  4. OXYCODONE 15MG ZYGENERICS [Suspect]
     Active Substance: OXYCODONE
     Indication: PRODUCT USED FOR UNKNOWN INDICATION
     Dosage: ?          QUANTITY:168 TABLET(S);?
     Route: 048
     Dates: start: 20170615, end: 20170617
  5. OXYCODONE 15MG ZYGENERICS [Suspect]
     Active Substance: OXYCODONE
     Indication: NEUROPATHY PERIPHERAL
     Dosage: ?          QUANTITY:168 TABLET(S);?
     Route: 048
     Dates: start: 20170615, end: 20170617

REACTIONS (5)
  - Abdominal pain upper [None]
  - Drug ineffective [None]
  - Malaise [None]
  - Nausea [None]
  - Headache [None]

NARRATIVE: CASE EVENT DATE: 20170615
